FAERS Safety Report 20216403 (Version 1)
Quarter: 2021Q4

REPORT INFORMATION
  Report Type: Spontaneous
  Country: FI (occurrence: FI)
  Receive Date: 20211222
  Receipt Date: 20211222
  Transmission Date: 20220304
  Serious: Yes (Hospitalization)
  Sender: FDA-Public Use
  Company Number: FI-NOVARTISPH-NVSC2021FI289514

PATIENT
  Age: 59 Year
  Sex: Female

DRUGS (12)
  1. OLANZAPINE [Suspect]
     Active Substance: OLANZAPINE
     Indication: Schizoaffective disorder
     Dosage: 1+2
     Route: 065
     Dates: start: 2010, end: 20211019
  2. OLANZAPINE [Suspect]
     Active Substance: OLANZAPINE
     Dosage: 1+1
     Route: 065
     Dates: start: 20211019, end: 20211027
  3. OLANZAPINE [Suspect]
     Active Substance: OLANZAPINE
     Dosage: 1 DOSAGE FORM, QD (IN THE EVENING)
     Route: 065
     Dates: start: 20211027, end: 20211028
  4. LITHIUM CARBONATE [Suspect]
     Active Substance: LITHIUM CARBONATE
     Indication: Schizoaffective disorder
     Dosage: UNK, (1+2)
     Route: 065
     Dates: start: 2011
  5. LITHIUM CARBONATE [Suspect]
     Active Substance: LITHIUM CARBONATE
     Dosage: UNK, (1+ 1?)
     Route: 065
     Dates: start: 20211110
  6. ARIPIPRAZOLE [Concomitant]
     Active Substance: ARIPIPRAZOLE
     Indication: Product used for unknown indication
     Dosage: UNK
     Route: 065
  7. QUETIAPINE FUMARATE [Concomitant]
     Active Substance: QUETIAPINE FUMARATE
     Indication: Product used for unknown indication
     Dosage: UNK
     Route: 065
  8. CLOZAPINE [Concomitant]
     Active Substance: CLOZAPINE
     Indication: Schizoaffective disorder
     Dosage: 25 MG (IN THE EVENING)
     Route: 048
     Dates: start: 20211018
  9. CLOZAPINE [Concomitant]
     Active Substance: CLOZAPINE
     Dosage: UNK (SLOWLY INCREASED TO 200 MG PER DAY)
     Route: 065
     Dates: end: 20211112
  10. TENOX [Concomitant]
     Indication: Product used for unknown indication
     Dosage: UNK UNK, QD, (?-1, WHEN NEEDED)
     Route: 065
     Dates: start: 20210924
  11. TENOX [Concomitant]
     Dosage: UNK UNK, QD, (?-2, WHEN NEEDED)
     Route: 065
     Dates: start: 20210928
  12. METFORMIN HYDROCHLORIDE [Concomitant]
     Active Substance: METFORMIN HYDROCHLORIDE
     Indication: Product used for unknown indication
     Dosage: 500 MG, QD
     Route: 065
     Dates: start: 2019

REACTIONS (3)
  - Delusion [Unknown]
  - Insomnia [Unknown]
  - Drug ineffective [Unknown]
